FAERS Safety Report 5423706-4 (Version None)
Quarter: 2007Q3

REPORT INFORMATION
  Report Type: 
  Country: None (occurrence: None)
  Receive Date: 20070725
  Receipt Date: 20070322
  Transmission Date: 20080115
  Serious: Yes (Other)
  Sender: FDA-Public Use
  Company Number: US200703001578

PATIENT
  Age: 10 Year
  Sex: Male
  Weight: 36.3 kg

DRUGS (1)
  1. STRATTERA [Suspect]
     Indication: ATTENTION DEFICIT/HYPERACTIVITY DISORDER
     Dosage: 75 MG, DAILY (1/D),; 75MG, DAILY (1/D)

REACTIONS (2)
  - OVERDOSE [None]
  - TACHYCARDIA [None]
